FAERS Safety Report 10077210 (Version 2)
Quarter: 2014Q2

REPORT INFORMATION
  Report Type: Spontaneous
  Country: US (occurrence: US)
  Receive Date: 20140414
  Receipt Date: 20140414
  Transmission Date: 20141212
  Serious: No
  Sender: FDA-Public Use
  Company Number: US-BANPHARM-20130908

PATIENT
  Age: 61 Year
  Sex: Male
  Weight: 163.29 kg

DRUGS (2)
  1. ALEVE LIQUID GELS 220MG [Suspect]
     Dosage: BID,
     Route: 048
     Dates: start: 201301
  2. MULTIVITAMIN [Concomitant]

REACTIONS (3)
  - Drug effect decreased [Unknown]
  - Therapeutic response changed [Unknown]
  - Incorrect drug administration duration [Unknown]
